FAERS Safety Report 5364241-1 (Version None)
Quarter: 2007Q2

REPORT INFORMATION
  Report Type: 
  Country: None (occurrence: None)
  Receive Date: 20070530
  Receipt Date: 20070109
  Transmission Date: 20071010
  Serious: No
  Sender: FDA-Public Use
  Company Number: 2007PV028171

PATIENT
  Age: 59 Year
  Sex: Female

DRUGS (1)
  1. BYETTA [Suspect]
     Indication: DIABETES MELLITUS NON-INSULIN-DEPENDENT
     Dosage: 5 MCB;QD;SC
     Route: 058
     Dates: start: 20061228

REACTIONS (8)
  - FEELING HOT [None]
  - INJECTION SITE BRUISING [None]
  - INJECTION SITE HAEMATOMA [None]
  - INJECTION SITE NODULE [None]
  - NAUSEA [None]
  - OEDEMA PERIPHERAL [None]
  - RASH PRURITIC [None]
  - VOMITING [None]
